FAERS Safety Report 17188509 (Version 1)
Quarter: 2019Q4

REPORT INFORMATION
  Report Type: Other
  Country: US (occurrence: US)
  Receive Date: 20191222
  Receipt Date: 20191222
  Transmission Date: 20200122
  Serious: No
  Sender: FDA-Public Use
  Company Number: US-ACORDA-ACO_161288_2019

PATIENT
  Sex: Male
  Weight: 72.56 kg

DRUGS (1)
  1. INBRIJA [Suspect]
     Active Substance: LEVODOPA
     Indication: PARKINSON^S DISEASE
     Dosage: TWO CAPSULES (84 MG) UP TO FIVE TIMES PER DAY AS NEEDED
     Dates: start: 20190825

REACTIONS (1)
  - Cough [Unknown]
